FAERS Safety Report 7437457-8 (Version None)
Quarter: 2011Q2

REPORT INFORMATION
  Report Type: 
  Country: None (occurrence: None)
  Receive Date: 20110426
  Receipt Date: 20100514
  Transmission Date: 20111010
  Serious: Yes (Other)
  Sender: FDA-Public Use
  Company Number: US-PFIZER INC-2009212433

PATIENT
  Sex: Female
  Weight: 50.8 kg

DRUGS (7)
  1. PROMETRIUM [Concomitant]
     Dosage: 200 MG, DAILY
  2. NEXIUM [Concomitant]
     Dosage: UNK
  3. ESTRING [Suspect]
     Indication: ATROPHIC VULVOVAGINITIS
     Dosage: 2 MG, UNK
     Dates: start: 20090101
  4. VIVELLE [Concomitant]
     Dosage: UNK
  5. HYDROCHLOROTHIAZIDE [Concomitant]
     Indication: BLOOD CALCIUM ABNORMAL
     Dosage: 12.5 MG, 1X/DAY
  6. SELEGILINE [Concomitant]
     Indication: PROPHYLAXIS
     Dosage: UNK
  7. ATROPIN [Concomitant]
     Dosage: UNK
     Route: 062

REACTIONS (3)
  - FLUSHING [None]
  - PRURITUS [None]
  - HYPERSENSITIVITY [None]
